FAERS Safety Report 9900310 (Version 1)
Quarter: 2014Q1

REPORT INFORMATION
  Report Type: Report from Study
  Country: CA (occurrence: CA)
  Receive Date: 20140216
  Receipt Date: 20140216
  Transmission Date: 20141002
  Serious: Yes (Hospitalization)
  Sender: FDA-Public Use
  Company Number: CA-US-EMD SERONO, INC.-7268840

PATIENT
  Age: 4 Year
  Sex: Female
  Weight: 18 kg

DRUGS (1)
  1. SAIZEN [Suspect]
     Indication: TURNER^S SYNDROME
     Route: 058
     Dates: start: 20130908

REACTIONS (1)
  - Papilloedema [Not Recovered/Not Resolved]
